FAERS Safety Report 7463080-5 (Version None)
Quarter: 2011Q2

REPORT INFORMATION
  Report Type: 
  Country: None (occurrence: None)
  Receive Date: 20110506
  Receipt Date: 20110502
  Transmission Date: 20111010
  Serious: Yes (Other)
  Sender: FDA-Public Use
  Company Number: CHPA2011DE06308

PATIENT
  Sex: Female

DRUGS (1)
  1. NICOTINE [Suspect]
     Dosage: 1 DF, ONCE/SINGLE
     Route: 048

REACTIONS (3)
  - FOREIGN BODY [None]
  - GINGIVAL INJURY [None]
  - TOOTH INJURY [None]
